FAERS Safety Report 15377085 (Version 3)
Quarter: 2018Q4

REPORT INFORMATION
  Report Type: Report from Study
  Country: DE (occurrence: DE)
  Receive Date: 20180913
  Receipt Date: 20181005
  Transmission Date: 20190204
  Serious: Yes (Hospitalization)
  Sender: FDA-Public Use
  Company Number: DE-BAUSCH-BL-2018-025197

PATIENT
  Sex: Male

DRUGS (15)
  1. METFORMIN [Concomitant]
     Active Substance: METFORMIN HYDROCHLORIDE
     Indication: DIABETES MELLITUS
     Dosage: 1-0-1-0
     Route: 048
     Dates: start: 2013
  2. MARCUMAR / FALITHROM [Concomitant]
     Indication: PULMONARY EMBOLISM
     Dosage: 0-0-1-0 EVERY DAY APART THURSDAY, ON THURSDAYS 0-0-0.5-0
     Route: 048
     Dates: start: 2016
  3. OMACOR [Concomitant]
     Active Substance: OMEGA-3-ACID ETHYL ESTERS
     Indication: HYPERLIPIDAEMIA
     Dosage: 1-1-1-0
     Route: 048
     Dates: start: 201709
  4. KYNTHEUM [Suspect]
     Active Substance: BRODALUMAB
     Indication: PSORIASIS
     Route: 058
     Dates: start: 20180621, end: 20180823
  5. PANTOZOL [Concomitant]
     Active Substance: PANTOPRAZOLE SODIUM
     Indication: REFLUX GASTRITIS
     Dosage: 1-0-0-0
     Route: 048
     Dates: start: 2015
  6. ADVANTAN [Concomitant]
     Active Substance: METHYLPREDNISOLONE ACEPONATE
     Indication: PSORIASIS
     Dosage: (1 IN 1 D)
     Route: 061
     Dates: start: 20180621, end: 20180730
  7. ACTRAPHANE [Concomitant]
     Active Substance: INSULIN HUMAN
     Indication: DIABETES MELLITUS
     Dosage: STRENGTH:30 (UNITS UNKNOWN), 42 IU - 0- 20 IU
     Route: 058
     Dates: start: 2013
  8. JANUVIA [Concomitant]
     Active Substance: SITAGLIPTIN PHOSPHATE
     Indication: DIABETES MELLITUS
     Dosage: 1-0-1-0
     Route: 048
     Dates: start: 2009
  9. CLOTRIMAZOL [Concomitant]
     Active Substance: CLOTRIMAZOLE
     Indication: PSORIASIS
     Route: 061
     Dates: start: 20180621, end: 20180730
  10. ADVANTAN [Concomitant]
     Active Substance: METHYLPREDNISOLONE ACEPONATE
     Dosage: (2 IN 1 D)
     Route: 061
     Dates: start: 20180906
  11. FENOFIBRATE. [Concomitant]
     Active Substance: FENOFIBRATE
     Indication: HYPERLIPIDAEMIA
     Dosage: 1-0-0-0
     Route: 048
     Dates: start: 201709
  12. MOMEGALEN [Concomitant]
     Indication: PSORIASIS
     Route: 061
     Dates: start: 20180730, end: 20180901
  13. VALSARTAN. [Concomitant]
     Active Substance: VALSARTAN
     Indication: HYPERTENSION
     Dosage: 1-0-0-0
     Route: 048
     Dates: start: 2008
  14. CURATODERM [Concomitant]
     Indication: PSORIASIS
     Route: 061
     Dates: start: 20180730, end: 20180901
  15. SPIRONOLACTON [Concomitant]
     Active Substance: SPIRONOLACTONE
     Indication: CARDIAC FAILURE
     Dosage: 0.5-0-0-0 (UNITS UNSPECIFIED)
     Route: 048
     Dates: start: 2015

REACTIONS (5)
  - Psoriasis [Recovered/Resolved]
  - C-reactive protein increased [Recovered/Resolved]
  - Impetigo [Recovered/Resolved]
  - Skin infection [Recovered/Resolved]
  - Skin candida [Recovered/Resolved]

NARRATIVE: CASE EVENT DATE: 20180730
